FAERS Safety Report 18705659 (Version 1)
Quarter: 2021Q1

REPORT INFORMATION
  Report Type: Spontaneous
  Country: US (occurrence: US)
  Receive Date: 20210105
  Receipt Date: 20210105
  Transmission Date: 20210419
  Serious: Yes (Life-Threatening, Hospitalization)
  Sender: FDA-Public Use
  Company Number: None

PATIENT
  Age: 88 Year
  Sex: Female
  Weight: 52.2 kg

DRUGS (1)
  1. BAMLANIVIMAB. [Suspect]
     Active Substance: BAMLANIVIMAB
     Indication: COVID-19
     Dosage: ?          OTHER FREQUENCY:ONCE;?
     Route: 042
     Dates: start: 20201207, end: 20201207

REACTIONS (9)
  - Chills [None]
  - Heart rate increased [None]
  - Leukocytosis [None]
  - Dysarthria [None]
  - Dyspnoea [None]
  - Feeling cold [None]
  - Wheezing [None]
  - Confusional state [None]
  - Pneumonia bacterial [None]

NARRATIVE: CASE EVENT DATE: 20201207
